FAERS Safety Report 5627371-2 (Version None)
Quarter: 2008Q1

REPORT INFORMATION
  Report Type: 
  Country: None (occurrence: None)
  Receive Date: 20080215
  Receipt Date: 20080207
  Transmission Date: 20080703
  Serious: Yes (Other)
  Sender: FDA-Public Use
  Company Number: PT-BAYER-200812826GPV

PATIENT
  Age: 43 Year
  Sex: Female

DRUGS (1)
  1. ULTRAVIST 300 [Suspect]
     Indication: UNEVALUABLE EVENT
     Dosage: TOTAL DAILY DOSE: 60 ML
     Route: 042
     Dates: start: 20080128, end: 20080128

REACTIONS (2)
  - DYSPNOEA [None]
  - FLUSHING [None]
